FAERS Safety Report 6054097-6 (Version None)
Quarter: 2009Q1

REPORT INFORMATION
  Report Type: 
  Country: None (occurrence: None)
  Receive Date: 20090127
  Receipt Date: 20090122
  Transmission Date: 20090719
  Serious: Yes (Hospitalization)
  Sender: FDA-Public Use
  Company Number: FR-PFIZER INC-2009159827

PATIENT

DRUGS (3)
  1. TAHOR [Suspect]
     Dosage: 80 MG, UNK
  2. HYDROXYCARBAMIDE [Concomitant]
  3. CLOPIDOGREL [Concomitant]

REACTIONS (2)
  - DRUG DISPENSING ERROR [None]
  - PANCREATIC MASS [None]
